FAERS Safety Report 15982027 (Version 1)
Quarter: 2019Q1

REPORT INFORMATION
  Report Type: Spontaneous
  Country: US (occurrence: US)
  Receive Date: 20190219
  Receipt Date: 20190219
  Transmission Date: 20190418
  Serious: No
  Sender: FDA-Public Use
  Company Number: US-VIFOR (INTERNATIONAL) INC.-VIT-2019-00985

PATIENT
  Age: 71 Year
  Sex: Male
  Weight: 85.5 kg

DRUGS (1)
  1. MIRCERA [Suspect]
     Active Substance: METHOXY POLYETHYLENE GLYCOL-EPOETIN BETA
     Indication: PRODUCT USED FOR UNKNOWN INDICATION
     Dates: start: 20181215

REACTIONS (2)
  - Oedema peripheral [Unknown]
  - Headache [Unknown]

NARRATIVE: CASE EVENT DATE: 20181217
